FAERS Safety Report 15759347 (Version 1)
Quarter: 2018Q4

REPORT INFORMATION
  Report Type: Spontaneous
  Country: US (occurrence: US)
  Receive Date: 20181226
  Receipt Date: 20181226
  Transmission Date: 20190205
  Serious: No
  Sender: FDA-Public Use
  Company Number: US-AUROBINDO-AUR-APU-2018-016917

PATIENT

DRUGS (2)
  1. BUPIVACAINE HYDROCHLORIDE 0.75% (7.5 MG/ML) [Suspect]
     Active Substance: BUPIVACAINE HYDROCHLORIDE
     Indication: PRODUCT USED FOR UNKNOWN INDICATION
     Dosage: UNK
     Dates: start: 20180205
  2. LIDOCAINE HYDROCHLORIDE INJECTION USP (SINGLE DOSE VIALS) 2%(20MG/ML) [Suspect]
     Active Substance: LIDOCAINE HYDROCHLORIDE
     Indication: PRODUCT USED FOR UNKNOWN INDICATION
     Dosage: UNK
     Dates: start: 20180205

REACTIONS (2)
  - Diplopia [Unknown]
  - Muscle disorder [Unknown]
